FAERS Safety Report 24444159 (Version 2)
Quarter: 2024Q4

REPORT INFORMATION
  Report Type: Report from Study
  Country: PK (occurrence: PK)
  Receive Date: 20241016
  Receipt Date: 20241024
  Transmission Date: 20250114
  Serious: Yes (Death)
  Sender: ROCHE
  Company Number: PK-ROCHE-10000102626

PATIENT
  Age: 58 Year
  Sex: Male

DRUGS (1)
  1. RITUXIMAB [Suspect]
     Active Substance: RITUXIMAB
     Indication: Diffuse large B-cell lymphoma
     Dosage: BATCH NUMBER WAS NOT AVAILBLE
     Route: 042
     Dates: start: 20240605, end: 20240831

REACTIONS (2)
  - Diffuse large B-cell lymphoma [Fatal]
  - Full blood count abnormal [Fatal]

NARRATIVE: CASE EVENT DATE: 20240928
